APPROVED DRUG PRODUCT: CLINDAMYCIN PALMITATE HYDROCHLORIDE
Active Ingredient: CLINDAMYCIN PALMITATE HYDROCHLORIDE
Strength: EQ 75MG BASE/5ML
Dosage Form/Route: FOR SOLUTION;ORAL
Application: A201821 | Product #001 | TE Code: AA
Applicant: RISING PHARMA HOLDINGS INC
Approved: Aug 28, 2012 | RLD: No | RS: No | Type: RX